FAERS Safety Report 8949529 (Version 1)
Quarter: 2012Q4

REPORT INFORMATION
  Report Type: 
  Country: FR (occurrence: FR)
  Receive Date: 20121206
  Receipt Date: 20121206
  Transmission Date: 20130627
  Serious: Yes (Hospitalization)
  Sender: FDA-Public Use
  Company Number: FR-UCBSA-072381

PATIENT
  Age: 44 Year
  Sex: Female

DRUGS (4)
  1. KEPPRA [Suspect]
     Indication: CONVULSION PROPHYLAXIS
     Route: 042
     Dates: start: 20120425, end: 20120429
  2. PRAVASTATINE [Suspect]
     Indication: DYSLIPIDAEMIA
     Dates: start: 20120426, end: 20120429
  3. AXEPIM [Suspect]
     Indication: INFECTION
     Route: 042
     Dates: start: 20120429, end: 20120501
  4. IZILOX [Suspect]
     Indication: INFECTION
     Route: 042
     Dates: start: 20120429, end: 20120501

REACTIONS (5)
  - Cholestasis [Recovering/Resolving]
  - Lipase increased [Recovering/Resolving]
  - Transaminases increased [Recovering/Resolving]
  - Hepatomegaly [Unknown]
  - Toxic skin eruption [Unknown]
